FAERS Safety Report 9041065 (Version 1)
Quarter: 2013Q1

REPORT INFORMATION
  Report Type: Spontaneous
  Country: US (occurrence: None)
  Receive Date: 20130124
  Receipt Date: 20130124
  Transmission Date: 20140127
  Serious: Yes (Hospitalization)
  Sender: FDA-Public Use
  Company Number: None

PATIENT
  Age: 88 Year
  Sex: Female
  Weight: 72.58 kg

DRUGS (1)
  1. METRONIDAZOLE [Suspect]

REACTIONS (7)
  - Dizziness [None]
  - Asthenia [None]
  - Chest discomfort [None]
  - Lip swelling [None]
  - Burning sensation [None]
  - Burning sensation [None]
  - Flatulence [None]
